FAERS Safety Report 9501267 (Version 2)
Quarter: 2013Q4

REPORT INFORMATION
  Report Type: Spontaneous
  Country: DE (occurrence: KR)
  Receive Date: 20130905
  Receipt Date: 20131107
  Transmission Date: 20140711
  Serious: Yes (Other)
  Sender: FDA-Public Use
  Company Number: DE-ACTELION-A-NJ2013-88085

PATIENT
  Age: 46 Year
  Sex: Male

DRUGS (2)
  1. VENTAVIS BAYER SCHERING [Suspect]
     Indication: PULMONARY HYPERTENSION
     Dosage: UNK
     Route: 055
     Dates: start: 20130701
  2. VIAGRA [Concomitant]
     Dosage: 50 MG, UNK
     Dates: start: 20130617

REACTIONS (1)
  - Blood bilirubin increased [Not Recovered/Not Resolved]
